FAERS Safety Report 18857680 (Version 6)
Quarter: 2024Q4

REPORT INFORMATION
  Report Type: Report from Study
  Country: EG (occurrence: EG)
  Receive Date: 20210208
  Receipt Date: 20241120
  Transmission Date: 20250115
  Serious: Yes (Other)
  Sender: ROCHE
  Company Number: EG-ROCHE-2759634

PATIENT
  Age: 24 Year
  Sex: Female
  Weight: 47.0 kg

DRUGS (2)
  1. OCREVUS [Suspect]
     Active Substance: OCRELIZUMAB
     Indication: Multiple sclerosis
     Dosage: SUBSEQUENT DOSE RECEIVED ON 17/JAN/2021.
     Route: 042
     Dates: start: 20210103
  2. OCREVUS [Suspect]
     Active Substance: OCRELIZUMAB
     Dosage: SUBSEQUENT DOSE RECEIVED ON 17/JAN/2021.
     Route: 042
     Dates: start: 20210117

REACTIONS (14)
  - Syncope [Recovering/Resolving]
  - Tachycardia [Not Recovered/Not Resolved]
  - Dyspnoea [Not Recovered/Not Resolved]
  - Headache [Not Recovered/Not Resolved]
  - Abdominal pain upper [Recovering/Resolving]
  - Muscle twitching [Not Recovered/Not Resolved]
  - Anaemia [Not Recovered/Not Resolved]
  - Menstruation irregular [Not Recovered/Not Resolved]
  - Hypotension [Unknown]
  - Visual impairment [Unknown]
  - Feeding disorder [Unknown]
  - Vomiting [Unknown]
  - Pyuria [Recovering/Resolving]
  - Gait disturbance [Not Recovered/Not Resolved]

NARRATIVE: CASE EVENT DATE: 20210103
